FAERS Safety Report 7014169-6 (Version None)
Quarter: 2010Q3

REPORT INFORMATION
  Report Type: 
  Country: None (occurrence: None)
  Receive Date: 20100927
  Receipt Date: 20100913
  Transmission Date: 20110219
  Serious: Yes (Other)
  Sender: FDA-Public Use
  Company Number: US-RANBAXY-2010RR-38304

PATIENT
  Sex: Male

DRUGS (3)
  1. CIPROFLOXACIN [Suspect]
     Indication: APPENDICITIS PERFORATED
     Dosage: UNK
     Dates: start: 20090911, end: 20091101
  2. LEVAQUIN [Suspect]
     Indication: INFECTION PROPHYLAXIS
     Dosage: UNK
     Route: 048
     Dates: start: 20090901, end: 20090924
  3. LEVAQUIN [Suspect]
     Dosage: UNK
     Route: 042
     Dates: start: 20091121, end: 20091124

REACTIONS (2)
  - POST-TRAUMATIC STRESS DISORDER [None]
  - ROTATOR CUFF SYNDROME [None]
